FAERS Safety Report 5043966-1 (Version None)
Quarter: 2006Q3

REPORT INFORMATION
  Report Type: 
  Country: None (occurrence: None)
  Receive Date: 20060706
  Receipt Date: 20060626
  Transmission Date: 20061208
  Serious: Yes (Other)
  Sender: FDA-Public Use
  Company Number: PHEH2006US08337

PATIENT
  Age: 21 Year
  Sex: Female

DRUGS (2)
  1. RITALIN [Suspect]
     Dosage: 10 MG, BID
     Dates: start: 20060525, end: 20060604
  2. LEXAPRO [Suspect]
     Indication: DEPRESSION
     Dosage: 20 MG, QD
     Dates: start: 20060201

REACTIONS (3)
  - CATHETER PLACEMENT [None]
  - DRUG INTERACTION [None]
  - URINARY RETENTION [None]
